FAERS Safety Report 7714456-X (Version None)
Quarter: 2011Q3

REPORT INFORMATION
  Report Type: 
  Country: None (occurrence: None)
  Receive Date: 20110829
  Receipt Date: 20110818
  Transmission Date: 20111222
  Serious: Yes (Other)
  Sender: FDA-Public Use
  Company Number: JP-BAYER-2011-008062

PATIENT
  Age: 80 Year
  Sex: Male
  Weight: 55 kg

DRUGS (12)
  1. INTERFERON [Suspect]
     Dosage: UNK
     Route: 065
  2. TALION [Concomitant]
     Dosage: DAILY DOSE 20 MG
     Route: 048
  3. AMLODIPINE [Concomitant]
     Dosage: DAILY DOSE 5 MG
     Route: 048
  4. SLOW-K [Concomitant]
     Indication: HYPOKALAEMIA
     Dosage: DAILY DOSE 600 MG
     Route: 048
     Dates: start: 20110221
  5. MUCOSTA [Concomitant]
     Dosage: DAILY DOSE 300 MG
     Route: 048
  6. NEXAVAR [Suspect]
     Dosage: 400 MG, QD
     Route: 048
     Dates: start: 20110210, end: 20110222
  7. JUVELA [Concomitant]
     Dosage: DAILY DOSE 150 MG
     Route: 048
  8. EPENARD [Concomitant]
     Dosage: DAILY DOSE 150 MG
     Route: 048
  9. AIDEITO [Concomitant]
     Dosage: DAILY DOSE 200 MG
     Route: 048
  10. NEXAVAR [Suspect]
     Indication: RENAL CELL CARCINOMA
     Dosage: 800 MG/D, QD
     Route: 048
     Dates: start: 20110113, end: 20110126
  11. LOSARTAN POTASSIUM AND HYDROCHLOROTHIAZIDE [Concomitant]
     Dosage: DAILY DOSE 1000 MG
     Route: 048
  12. NEXAVAR [Suspect]
     Dosage: 400 MG, QD
     Route: 048
     Dates: start: 20110207

REACTIONS (6)
  - PALMAR-PLANTAR ERYTHRODYSAESTHESIA SYNDROME [None]
  - DYSPHONIA [None]
  - URINARY INCONTINENCE [None]
  - INSOMNIA [None]
  - ENCEPHALITIS VIRAL [None]
  - PYREXIA [None]
